FAERS Safety Report 16339220 (Version 2)
Quarter: 2019Q2

REPORT INFORMATION
  Report Type: Report from Study
  Country: JP (occurrence: JP)
  Receive Date: 20190521
  Receipt Date: 20190529
  Transmission Date: 20190711
  Serious: Yes (Hospitalization)
  Sender: FDA-Public Use
  Company Number: JP-BAUSCH-BL-2019-014860

PATIENT
  Age: 39 Year
  Sex: Male
  Weight: 51 kg

DRUGS (5)
  1. KHK4827 [Suspect]
     Active Substance: BRODALUMAB
     Indication: ANKYLOSING SPONDYLITIS
     Dosage: THERAPY DURATION: 1 YEAR 3 MONTHS 7 DAYS
     Route: 058
     Dates: start: 20180104, end: 20190410
  2. LOXONIN [Concomitant]
     Active Substance: LOXOPROFEN SODIUM
     Indication: PRODUCT USED FOR UNKNOWN INDICATION
     Dosage: TAPE (INCLUDING POULTICE)
     Dates: start: 20170109
  3. FUNGIZONE [Concomitant]
     Active Substance: AMPHOTERICIN B
     Indication: PRODUCT USED FOR UNKNOWN INDICATION
     Dates: start: 20180717
  4. MUCOSTA [Concomitant]
     Active Substance: REBAMIPIDE
     Indication: PRODUCT USED FOR UNKNOWN INDICATION
     Dates: start: 20170803
  5. CELECOX [Concomitant]
     Active Substance: CELECOXIB
     Indication: PRODUCT USED FOR UNKNOWN INDICATION
     Dates: start: 20170803

REACTIONS (1)
  - Adrenal mass [Unknown]

NARRATIVE: CASE EVENT DATE: 20190516
